FAERS Safety Report 9301300 (Version 2)
Quarter: 2013Q2

REPORT INFORMATION
  Report Type: Spontaneous
  Country: JP (occurrence: JP)
  Receive Date: 20130521
  Receipt Date: 20130603
  Transmission Date: 20140414
  Serious: Yes (Death, Hospitalization)
  Sender: FDA-Public Use
  Company Number: JP-UCBSA-084232

PATIENT
  Age: 77 Year
  Sex: Female

DRUGS (9)
  1. CIMZIA [Suspect]
     Indication: RHEUMATOID ARTHRITIS
     Dosage: DOSE: 200 MG SYRINGE
     Route: 058
     Dates: start: 20130404, end: 20130404
  2. METHOTREXATE [Concomitant]
     Indication: RHEUMATOID ARTHRITIS
     Dosage: DAILY DOSE: 8 MG
     Route: 048
     Dates: start: 20120501
  3. METHOTREXATE [Concomitant]
     Indication: RHEUMATOID ARTHRITIS
     Dosage: DAILY DOSE: 6 MG
     Dates: start: 20120306, end: 20120430
  4. METHOTREXATE [Concomitant]
     Indication: RHEUMATOID ARTHRITIS
     Dosage: DOSE: 4 MG
     Dates: start: 20111227, end: 20120305
  5. LOXONIN [Concomitant]
     Route: 048
  6. ACTONEL [Concomitant]
     Route: 048
  7. EDIROL [Concomitant]
     Route: 048
  8. METHYCOBAL [Concomitant]
     Route: 048
  9. JUVELA N [Concomitant]
     Route: 048

REACTIONS (4)
  - Death [Fatal]
  - Pyrexia [Unknown]
  - Musculoskeletal stiffness [Recovered/Resolved]
  - Malaise [Recovered/Resolved]
